FAERS Safety Report 16981021 (Version 1)
Quarter: 2019Q4

REPORT INFORMATION
  Report Type: Report from Study
  Country: GB (occurrence: GB)
  Receive Date: 20191031
  Receipt Date: 20191031
  Transmission Date: 20200122
  Serious: Yes (Hospitalization)
  Sender: FDA-Public Use
  Company Number: GB-MYLANLABS-2019M1103690

PATIENT
  Sex: Male

DRUGS (1)
  1. BRABIO 40 MG/ML SOLUTION FOR INJECTION, PRE-FILLED-SYRINGE [Suspect]
     Active Substance: GLATIRAMER ACETATE
     Indication: MULTIPLE SCLEROSIS
     Dosage: 40 MILLIGRAM, 3XW
     Route: 058
     Dates: start: 2019

REACTIONS (4)
  - Injection site reaction [Unknown]
  - Injection site cellulitis [Unknown]
  - Infection [Unknown]
  - Gait inability [Unknown]

NARRATIVE: CASE EVENT DATE: 2019
